FAERS Safety Report 4367937-3 (Version None)
Quarter: 2004Q2

REPORT INFORMATION
  Report Type: 
  Country: None (occurrence: None)
  Receive Date: 20040527
  Receipt Date: 20040430
  Transmission Date: 20050107
  Serious: No
  Sender: FDA-Public Use
  Company Number: 236629

PATIENT
  Age: 70 Year
  Sex: Male

DRUGS (14)
  1. NOVOLOG MIX 70/30 [Suspect]
     Indication: INSULIN-REQUIRING TYPE II DIABETES MELLITUS
     Dosage: 30 IU QAM+25 IU QPM, SUBCUTANEOUS
     Route: 058
     Dates: start: 20040101
  2. PRANDIN (REPAGLINIDE) TABLET [Concomitant]
  3. COREG [Concomitant]
  4. CRESTOR (ROSUVASTATIN) [Concomitant]
  5. DIGOXIN [Concomitant]
  6. ALTACE [Concomitant]
  7. LASIX /SCH/ (FUROSEMIDE, FUROSEMIDE SODIUM) [Concomitant]
  8. WARFARIN SODIUM [Concomitant]
  9. ZAROXOLYN [Concomitant]
  10. KALIUMKLORID (POTASSIUM CHLORIDE) [Concomitant]
  11. PREVACID [Concomitant]
  12. ULTRACET [Concomitant]
  13. HUMULIN N [Concomitant]
  14. ZETIA [Concomitant]

REACTIONS (1)
  - HYPOGLYCAEMIA [None]
